FAERS Safety Report 8790684 (Version 1)
Quarter: 2012Q4

REPORT INFORMATION
  Report Type: Spontaneous
  Country: US (occurrence: None)
  Receive Date: 20120912
  Receipt Date: 20120912
  Transmission Date: 20130627
  Serious: No
  Sender: FDA-Public Use
  Company Number: None

PATIENT
  Age: 54 Year
  Sex: Male
  Weight: 94.5 kg

DRUGS (2)
  1. SIMVASTATIN [Suspect]
     Indication: HYPERLIPIDEMIA
     Route: 048
     Dates: start: 20100413, end: 20110809
  2. DILTIAZEM [Suspect]
     Indication: HYPERTENSION
     Route: 048
     Dates: start: 20100401

REACTIONS (2)
  - Myalgia [None]
  - Pain in extremity [None]
